FAERS Safety Report 20880365 (Version 1)
Quarter: 2022Q2

REPORT INFORMATION
  Report Type: Spontaneous
  Country: CN (occurrence: CN)
  Receive Date: 20220526
  Receipt Date: 20220526
  Transmission Date: 20220721
  Serious: Yes (Other)
  Sender: FDA-Public Use
  Company Number: CN-PFIZER INC-202200732297

PATIENT
  Age: 12 Year
  Sex: Female
  Weight: 44 kg

DRUGS (2)
  1. SOLU-MEDROL [Suspect]
     Active Substance: METHYLPREDNISOLONE SODIUM SUCCINATE
     Indication: Immunosuppression
     Dosage: 300.000 ML, 1X/DAY
     Route: 041
     Dates: start: 20220426, end: 20220426
  2. DEXTROSE [Concomitant]
     Active Substance: DEXTROSE
     Indication: Vehicle solution use
     Dosage: 200 ML, 1X/DAY
     Route: 041
     Dates: start: 20220426, end: 20220426

REACTIONS (4)
  - Diabetes mellitus [Recovering/Resolving]
  - Tachypnoea [Recovering/Resolving]
  - Dizziness [Recovering/Resolving]
  - Chest discomfort [Recovering/Resolving]

NARRATIVE: CASE EVENT DATE: 20220426
